FAERS Safety Report 21648598 (Version 1)
Quarter: 2022Q4

REPORT INFORMATION
  Report Type: Spontaneous
  Country: US (occurrence: US)
  Receive Date: 20221128
  Receipt Date: 20221128
  Transmission Date: 20230113
  Serious: Yes (Other)
  Sender: FDA-Public Use
  Company Number: US-SA-SAC20221126000013

PATIENT
  Age: 84 Year
  Sex: Male

DRUGS (1)
  1. SARCLISA [Suspect]
     Active Substance: ISATUXIMAB-IRFC
     Indication: Plasma cell myeloma
     Dosage: 810 MG, ON DAYS 1 AND 15 OF EVERY 28 DAY
     Route: 042
     Dates: start: 20220714

REACTIONS (1)
  - Plasma cell myeloma [Unknown]
